FAERS Safety Report 11167404 (Version 2)
Quarter: 2015Q2

REPORT INFORMATION
  Report Type: Report from Study
  Country: US (occurrence: US)
  Receive Date: 20150605
  Receipt Date: 20150611
  Transmission Date: 20150821
  Serious: Yes (Hospitalization)
  Sender: FDA-Public Use
  Company Number: US-ROCHE-1586980

PATIENT
  Age: 60 Year
  Sex: Female
  Weight: 125 kg

DRUGS (11)
  1. CARAFATE [Concomitant]
     Active Substance: SUCRALFATE
     Dosage: AS NEEDED
     Route: 065
  2. ZETIA [Concomitant]
     Active Substance: EZETIMIBE
     Route: 048
  3. SINGULAIR [Concomitant]
     Active Substance: MONTELUKAST SODIUM
     Route: 048
  4. LEVOXYL [Concomitant]
     Active Substance: LEVOTHYROXINE SODIUM
     Route: 048
  5. NEXIUM [Concomitant]
     Active Substance: ESOMEPRAZOLE MAGNESIUM
     Route: 048
  6. KOMBIGLYZE XR [Concomitant]
     Active Substance: METFORMIN HYDROCHLORIDE\SAXAGLIPTIN HYDROCHLORIDE
     Dosage: 2.5/1000MG
     Route: 048
  7. VEMURAFENIB [Suspect]
     Active Substance: VEMURAFENIB
     Indication: THYROID CANCER
     Dosage: DURATION: 15 DAYS?VEMURAFENIB THERAPY INTERRUPTED ON 07/MAY/2015
     Route: 048
     Dates: start: 20150322
  8. XYZAL [Concomitant]
     Active Substance: LEVOCETIRIZINE DIHYDROCHLORIDE
     Dosage: I TABLET DAILY
     Route: 048
  9. TYLENOL [Concomitant]
     Active Substance: ACETAMINOPHEN
     Dosage: AS NEEDED
     Route: 065
  10. LANTUS SOLOSTAR [Concomitant]
     Active Substance: INSULIN GLARGINE
     Dosage: 45 UNITS AT BED TIME
     Route: 065
  11. NASOCORT [Concomitant]
     Active Substance: BUDESONIDE
     Dosage: NASAL SPRAY 1 SPRAY
     Route: 065

REACTIONS (2)
  - Pyrexia [Unknown]
  - Gout [Recovering/Resolving]

NARRATIVE: CASE EVENT DATE: 20150503
